FAERS Safety Report 19374030 (Version 1)
Quarter: 2021Q2

REPORT INFORMATION
  Report Type: Spontaneous
  Country: US (occurrence: US)
  Receive Date: 20210604
  Receipt Date: 20210604
  Transmission Date: 20210717
  Serious: No
  Sender: FDA-Public Use
  Company Number: None

PATIENT
  Age: 47 Year
  Sex: Female
  Weight: 68.95 kg

DRUGS (1)
  1. HYDROXYCHLOROQUINE 200MG TAB [Suspect]
     Active Substance: HYDROXYCHLOROQUINE SULFATE
     Indication: CONNECTIVE TISSUE DISORDER
     Route: 048
     Dates: start: 202101, end: 202102

REACTIONS (3)
  - Pruritus [None]
  - Rash [None]
  - Therapeutic response changed [None]

NARRATIVE: CASE EVENT DATE: 20210101
